FAERS Safety Report 10905046 (Version 2)
Quarter: 2015Q2

REPORT INFORMATION
  Report Type: Spontaneous
  Country: FR (occurrence: FR)
  Receive Date: 20150311
  Receipt Date: 20150417
  Transmission Date: 20150821
  Serious: Yes (Other)
  Sender: FDA-Public Use
  Company Number: FR-RB PHARMACEUTICALS LIMITED-RB-076760-2015

PATIENT
  Sex: Female

DRUGS (2)
  1. VERATRAN [Concomitant]
     Active Substance: CLOTIAZEPAM
     Indication: DRUG WITHDRAWAL SYNDROME
     Dosage: 1 TAB, QD, IN EVENING
     Route: 065
     Dates: start: 201502
  2. SUBOXONE [Suspect]
     Active Substance: BUPRENORPHINE HYDROCHLORIDE\NALOXONE HYDROCHLORIDE
     Indication: DRUG WITHDRAWAL SYNDROME
     Dosage: 2 TABLETS, UNKNOWN
     Route: 065
     Dates: start: 201502

REACTIONS (3)
  - Adverse event [Unknown]
  - Off label use [Unknown]
  - Gastric disorder [Unknown]

NARRATIVE: CASE EVENT DATE: 201502
